FAERS Safety Report 4569080-7 (Version None)
Quarter: 2005Q1

REPORT INFORMATION
  Report Type: 
  Country: None (occurrence: None)
  Receive Date: 20050203
  Receipt Date: 20050128
  Transmission Date: 20050727
  Serious: Yes (Hospitalization)
  Sender: FDA-Public Use
  Company Number: BE-BRISTOL-MYERS SQUIBB COMPANY-12841029

PATIENT
  Age: 17 Year
  Sex: Female

DRUGS (2)
  1. TRAZOLAN [Suspect]
     Indication: ANXIETY
     Route: 048
     Dates: start: 20041215, end: 20041217
  2. MIANSERIN HCL [Concomitant]
     Dates: start: 20040901

REACTIONS (3)
  - OEDEMA [None]
  - PYREXIA [None]
  - URTICARIA [None]
